FAERS Safety Report 13269149 (Version 2)
Quarter: 2017Q2

REPORT INFORMATION
  Report Type: Spontaneous
  Country: JP (occurrence: JP)
  Receive Date: 20170224
  Receipt Date: 20170527
  Transmission Date: 20170830
  Serious: Yes (Death, Life-Threatening, Hospitalization, Other)
  Sender: FDA-Public Use
  Company Number: JP-AMGEN-JPNSP2017029823

PATIENT
  Age: 73 Year
  Sex: Male

DRUGS (6)
  1. CALCIUM FOLINATE [Concomitant]
     Active Substance: LEUCOVORIN CALCIUM
     Indication: COLON CANCER
     Dosage: 250 MG, UNK
     Route: 041
     Dates: start: 20160722, end: 20161114
  2. VECTIBIX [Suspect]
     Active Substance: PANITUMUMAB
     Indication: COLON CANCER
     Dosage: 200 MG, UNK
     Route: 041
     Dates: start: 20160805, end: 20160930
  3. 5-FU                               /00098801/ [Suspect]
     Active Substance: FLUOROURACIL
     Indication: COLON CANCER
     Dosage: 500 MG, UNK
     Route: 040
     Dates: start: 20160722, end: 20161114
  4. OXALIPLATIN. [Suspect]
     Active Substance: OXALIPLATIN
     Indication: COLON CANCER
     Dosage: UNK
     Route: 041
     Dates: start: 20160722, end: 20161114
  5. VECTIBIX [Suspect]
     Active Substance: PANITUMUMAB
     Dosage: 200 MG, UNK
     Route: 041
     Dates: start: 20161024, end: 20161114
  6. 5-FU                               /00098801/ [Suspect]
     Active Substance: FLUOROURACIL
     Dosage: 3000 MG, UNK
     Route: 040
     Dates: start: 20160722, end: 20161114

REACTIONS (8)
  - Tumour necrosis [Fatal]
  - Sepsis [Unknown]
  - Febrile neutropenia [Recovered/Resolved]
  - Perforation [Unknown]
  - Colon cancer [Fatal]
  - Intestinal perforation [Fatal]
  - Bone marrow failure [Recovered/Resolved]
  - Bone marrow failure [Recovered/Resolved]

NARRATIVE: CASE EVENT DATE: 2016
